FAERS Safety Report 13717051 (Version 1)
Quarter: 2017Q3

REPORT INFORMATION
  Report Type: Report from Study
  Country: CO (occurrence: CO)
  Receive Date: 20170705
  Receipt Date: 20170705
  Transmission Date: 20171127
  Serious: Yes (Death)
  Sender: FDA-Public Use
  Company Number: CO-ASTELLAS-2017US026249

PATIENT
  Sex: Female
  Weight: 47 kg

DRUGS (1)
  1. TACROLIMUS. [Suspect]
     Active Substance: TACROLIMUS
     Indication: RENAL TRANSPLANT
     Route: 048
     Dates: start: 20141027, end: 20170324

REACTIONS (1)
  - Death [Fatal]
